FAERS Safety Report 21843576 (Version 1)
Quarter: 2023Q1

REPORT INFORMATION
  Report Type: Spontaneous
  Country: US (occurrence: US)
  Receive Date: 20230110
  Receipt Date: 20230110
  Transmission Date: 20230418
  Serious: No
  Sender: FDA-Public Use
  Company Number: US-PFIZER INC-PV202300004186

PATIENT
  Age: 58 Year
  Sex: Female

DRUGS (5)
  1. ZITHROMAX [Suspect]
     Active Substance: AZITHROMYCIN DIHYDRATE
     Indication: Respiratory tract congestion
     Dosage: UNK
     Dates: start: 202212, end: 20221230
  2. BENZONATATE [Suspect]
     Active Substance: BENZONATATE
     Indication: Respiratory tract congestion
     Dosage: UNK
     Dates: start: 202212, end: 20221230
  3. PREDNISONE [Suspect]
     Active Substance: PREDNISONE
     Indication: Respiratory tract congestion
     Dosage: UNK
     Dates: start: 202212, end: 20221230
  4. ORENITRAM [Concomitant]
     Active Substance: TREPROSTINIL
     Indication: Pulmonary arterial hypertension
     Dosage: UNK
     Route: 048
     Dates: start: 202103
  5. ORENITRAM [Concomitant]
     Active Substance: TREPROSTINIL
     Dosage: 5 MG, 3X/DAY
     Route: 048

REACTIONS (2)
  - Off label use [Not Recovered/Not Resolved]
  - Drug ineffective for unapproved indication [Not Recovered/Not Resolved]
